FAERS Safety Report 17177498 (Version 2)
Quarter: 2020Q1

REPORT INFORMATION
  Report Type: Spontaneous
  Country: JP (occurrence: JP)
  Receive Date: 20191219
  Receipt Date: 20200122
  Transmission Date: 20200409
  Serious: Yes (Other)
  Sender: FDA-Public Use
  Company Number: JP-GLAXOSMITHKLINE-JP2019228820

PATIENT
  Sex: Female

DRUGS (1)
  1. REQUIP [Suspect]
     Active Substance: ROPINIROLE HYDROCHLORIDE
     Indication: PARKINSON^S DISEASE
     Dosage: 8 MG, QD
     Route: 048

REACTIONS (2)
  - Dysphagia [Unknown]
  - Lung neoplasm malignant [Unknown]
